FAERS Safety Report 8234543-X (Version None)
Quarter: 2012Q1

REPORT INFORMATION
  Report Type: 
  Country: None (occurrence: None)
  Receive Date: 20120322
  Receipt Date: 20120308
  Transmission Date: 20120608
  Serious: Yes (Hospitalization)
  Sender: FDA-Public Use
  Company Number: 2012SP013171

PATIENT
  Age: 89 Year
  Sex: Female

DRUGS (12)
  1. ARICEPT [Suspect]
     Indication: DEMENTIA ALZHEIMER'S TYPE
     Dosage: 10 MG;QD;PO
     Route: 048
  2. ZOLPIDEM [Suspect]
     Indication: INSOMNIA
     Dosage: 1 DF; QD; PO
     Route: 048
  3. FUROSEMIDE [Concomitant]
  4. AMIODARONE HCL [Concomitant]
  5. LEVOTHYROXINE SODIUM [Concomitant]
  6. LIDOCAINE [Concomitant]
  7. SPASFON [Concomitant]
  8. ACETAMINOPHEN [Concomitant]
  9. PERINDOPRIL ERBUMINE [Concomitant]
  10. MIRTAZAPINE [Suspect]
     Indication: MAJOR DEPRESSION
     Dosage: 15 MG; QD; PO
     Route: 048
  11. ALPRAZOLAM [Suspect]
     Indication: ANXIETY
     Dosage: 0.5 MG; QD; PO
     Route: 048
  12. ASPIRIN [Concomitant]

REACTIONS (3)
  - AMNESIA [None]
  - IATROGENIC INJURY [None]
  - FALL [None]
